FAERS Safety Report 21921170 (Version 1)
Quarter: 2023Q1

REPORT INFORMATION
  Report Type: Spontaneous
  Country: US (occurrence: None)
  Receive Date: 20230120
  Receipt Date: 20230120
  Transmission Date: 20230417
  Serious: Yes (Hospitalization)
  Sender: FDA-Public Use
  Company Number: None

PATIENT
  Age: 59 Year
  Sex: Male
  Weight: 86.7 kg

DRUGS (1)
  1. NIVOLUMAB [Suspect]
     Active Substance: NIVOLUMAB
     Dosage: 240 MG EVERY 2 WEEKS INTRAVENOUS?
     Route: 042
     Dates: start: 20170329

REACTIONS (2)
  - Seizure [None]
  - Pneumonia [None]

NARRATIVE: CASE EVENT DATE: 20170501
